FAERS Safety Report 6770480-5 (Version None)
Quarter: 2010Q2

REPORT INFORMATION
  Report Type: 
  Country: None (occurrence: None)
  Receive Date: 20100615
  Receipt Date: 20100416
  Transmission Date: 20101027
  Serious: Yes (Hospitalization, Other)
  Sender: FDA-Public Use
  Company Number: US-BAYER-201015630NA

PATIENT
  Age: 33 Year
  Sex: Female
  Weight: 71 kg

DRUGS (14)
  1. YAZ [Suspect]
     Indication: CONTRACEPTION
     Route: 048
     Dates: start: 20080301, end: 20090901
  2. HERBAL PRODUCTS [Concomitant]
     Route: 065
  3. GABAPENTIN [Concomitant]
     Route: 065
  4. DETROL [Concomitant]
     Route: 065
  5. FERROUS SULFATE TAB [Concomitant]
     Route: 065
  6. VALTREX [Concomitant]
     Route: 065
  7. NEXIUM [Concomitant]
     Dosage: TOTAL DAILY DOSE: 40 MG  UNIT DOSE: 40 MG
     Route: 065
  8. VITAMIN B-12 [Concomitant]
     Dosage: EVERY 2 WEEKS
     Route: 065
  9. VIT C [Concomitant]
     Route: 065
  10. NALTREXONE HYDROCHLORIDE [Concomitant]
     Route: 065
  11. LYRICA [Concomitant]
     Route: 065
  12. LEVLEN 28 [Concomitant]
     Dosage: 28; ON 18-AUG-2008, PATIENT WAS PRESCRIBED
     Route: 065
  13. NEURONTIN [Concomitant]
     Route: 065
  14. SALMON OIL [Concomitant]

REACTIONS (14)
  - ABDOMINAL DISTENSION [None]
  - ABDOMINAL PAIN UPPER [None]
  - ABDOMINAL TENDERNESS [None]
  - BOWEL MOVEMENT IRREGULARITY [None]
  - CHOLECYSTITIS CHRONIC [None]
  - CHOLELITHIASIS [None]
  - DIZZINESS [None]
  - DYSPEPSIA [None]
  - GASTROINTESTINAL MOTILITY DISORDER [None]
  - HYPERHIDROSIS [None]
  - NAUSEA [None]
  - ODYNOPHAGIA [None]
  - REGURGITATION [None]
  - VOMITING [None]
